FAERS Safety Report 9331863 (Version 1)
Quarter: 2013Q2

REPORT INFORMATION
  Report Type: Spontaneous
  Country: JP (occurrence: JP)
  Receive Date: 20130605
  Receipt Date: 20130605
  Transmission Date: 20140414
  Serious: Yes (Hospitalization)
  Sender: FDA-Public Use
  Company Number: JP-ALEXION PHARMACEUTICALS INC.-A201301273

PATIENT
  Age: 86 Year
  Sex: Female

DRUGS (6)
  1. SOLIRIS 300MG [Suspect]
     Indication: PAROXYSMAL NOCTURNAL HAEMOGLOBINURIA
     Dosage: 900 MG, Q2W
     Route: 042
  2. BLOOD TRANSFUSION, AUXILIARY PRODUCTS [Concomitant]
     Dosage: 9 TIMES 70 UNITS (2012)
     Dates: start: 2012, end: 2012
  3. NEORAL [Concomitant]
     Dosage: 10 MG, BID
     Dates: start: 20120228, end: 20120507
  4. NEORAL [Concomitant]
     Dosage: 10 MG, TID
     Dates: start: 20120508, end: 20120521
  5. WARFARIN [Concomitant]
     Dosage: 1 MG, QD
     Dates: start: 20120321, end: 20120423
  6. WARFARIN [Concomitant]
     Dosage: 0.75 MG, QD
     Dates: start: 20120424, end: 20120430

REACTIONS (1)
  - Ileus [Recovering/Resolving]
